FAERS Safety Report 20082053 (Version 1)
Quarter: 2021Q4

REPORT INFORMATION
  Report Type: Spontaneous
  Country: US (occurrence: None)
  Receive Date: 20211117
  Receipt Date: 20211117
  Transmission Date: 20220303
  Serious: Yes (Hospitalization)
  Sender: FDA-Public Use
  Company Number: None

PATIENT
  Sex: Female

DRUGS (1)
  1. PROCRIT [Suspect]
     Active Substance: ERYTHROPOIETIN
     Indication: Renal transplant
     Dosage: FREQUENCY : WEEKLY;?
     Route: 058
     Dates: start: 20210801

REACTIONS (2)
  - Urinary tract infection [None]
  - Therapy interrupted [None]
